FAERS Safety Report 14935051 (Version 1)
Quarter: 2018Q2

REPORT INFORMATION
  Report Type: Spontaneous
  Country: US (occurrence: US)
  Receive Date: 20180506
  Receipt Date: 20180506
  Transmission Date: 20180711
  Serious: Yes (Death, Hospitalization)
  Sender: FDA-Public Use
  Company Number: None

PATIENT
  Age: 70 Year
  Sex: Male
  Weight: 86.85 kg

DRUGS (2)
  1. OPDIVO [Suspect]
     Active Substance: NIVOLUMAB
     Indication: METASTATIC MALIGNANT MELANOMA
     Route: 042
     Dates: start: 20170417, end: 20170428
  2. YERVOY [Suspect]
     Active Substance: IPILIMUMAB
     Indication: METASTATIC MALIGNANT MELANOMA
     Route: 042
     Dates: start: 20170417, end: 20170428

REACTIONS (23)
  - Aspartate aminotransferase increased [None]
  - Presyncope [None]
  - Orthostatic hypotension [None]
  - Myasthenia gravis [None]
  - Diplopia [None]
  - Fatigue [None]
  - Heart alternation [None]
  - Gaze palsy [None]
  - Electrocardiogram QRS complex prolonged [None]
  - Eyelid ptosis [None]
  - Rhabdomyolysis [None]
  - Cardiac arrest [None]
  - Respiratory fatigue [None]
  - Bundle branch block right [None]
  - Vision blurred [None]
  - Facial paralysis [None]
  - Alanine aminotransferase increased [None]
  - Ejection fraction decreased [None]
  - Ventricular tachycardia [None]
  - Troponin increased [None]
  - Myocarditis [None]
  - Dyspnoea [None]
  - Atrioventricular block complete [None]

NARRATIVE: CASE EVENT DATE: 20170425
